FAERS Safety Report 18903164 (Version 1)
Quarter: 2021Q1

REPORT INFORMATION
  Report Type: Spontaneous
  Country: US (occurrence: US)
  Receive Date: 20210216
  Receipt Date: 20210216
  Transmission Date: 20210420
  Serious: Yes (Other)
  Sender: FDA-Public Use
  Company Number: US-FDC LIMITED-2021RIS00008

PATIENT
  Sex: Male

DRUGS (7)
  1. UNSPECIFIED OTC PRODUCT FOR VISION [Concomitant]
  2. LORAZEPAM. [Concomitant]
     Active Substance: LORAZEPAM
  3. LUMIGAN [Concomitant]
     Active Substance: BIMATOPROST
  4. ^MARINOL^ [Concomitant]
  5. TIMOLOL. [Suspect]
     Active Substance: TIMOLOL
     Dosage: UNK
     Dates: start: 2020, end: 2020
  6. LISINOPRIL. [Concomitant]
     Active Substance: LISINOPRIL
  7. UNSPECIFIED BENZODIAZEPINE [Concomitant]
     Active Substance: BENZODIAZEPINE

REACTIONS (5)
  - Dyspnoea [Recovered/Resolved]
  - Chronic obstructive pulmonary disease [Recovered/Resolved]
  - Gait disturbance [Recovered/Resolved]
  - Cough [Recovered/Resolved]
  - Contraindicated product administered [Recovered/Resolved]

NARRATIVE: CASE EVENT DATE: 2020
